FAERS Safety Report 7782763-0 (Version None)
Quarter: 2011Q3

REPORT INFORMATION
  Report Type: 
  Country: None (occurrence: None)
  Receive Date: 20110928
  Receipt Date: 20110916
  Transmission Date: 20111222
  Serious: Yes (Hospitalization)
  Sender: FDA-Public Use
  Company Number: US-BAYER-2011-088176

PATIENT
  Age: 58 Year
  Sex: Female
  Weight: 108.84 kg

DRUGS (6)
  1. CALAN SLOW RELEASE [Concomitant]
  2. ASPIRIN [Suspect]
     Dosage: 2 DF, PRN, BOTTLE COUNT 40S
     Route: 048
     Dates: start: 20110801, end: 20110830
  3. PROZAC [Concomitant]
  4. ATENOLOL [Concomitant]
  5. WARFARIN SODIUM [Concomitant]
  6. LYRICA [Concomitant]

REACTIONS (4)
  - INTERNATIONAL NORMALISED RATIO INCREASED [None]
  - MALAISE [None]
  - DECREASED APPETITE [None]
  - GASTROINTESTINAL HAEMORRHAGE [None]
